FAERS Safety Report 8012159-8 (Version None)
Quarter: 2011Q4

REPORT INFORMATION
  Report Type: 
  Country: None (occurrence: None)
  Receive Date: 20111228
  Receipt Date: 20111222
  Transmission Date: 20120403
  Serious: Yes (Other)
  Sender: FDA-Public Use
  Company Number: US-BAYER-2011-123503

PATIENT
  Age: 71 Year
  Sex: Female
  Weight: 53 kg

DRUGS (5)
  1. THYROID TAB [Concomitant]
  2. CITRACAL CALCIUM SUPPLEMENT GUMMIES [Suspect]
     Dosage: BOTTLE COUNT 60S
     Route: 048
     Dates: start: 20111218, end: 20111222
  3. CITRACAL MAXIMUM [Suspect]
     Dosage: CONSUMER TOOK 1 OR 2 TWICE A DAY. BOTTLE COUNT 180S.
     Route: 048
  4. NEXIUM [Concomitant]
  5. IRON [Concomitant]

REACTIONS (4)
  - GLOSSODYNIA [None]
  - RETCHING [None]
  - CHOKING [None]
  - ORAL PAIN [None]
